FAERS Safety Report 9945890 (Version 1)
Quarter: 2014Q1

REPORT INFORMATION
  Report Type: Spontaneous
  Country: US (occurrence: US)
  Receive Date: 20140303
  Receipt Date: 20140303
  Transmission Date: 20141002
  Serious: Yes (Death, Other)
  Sender: FDA-Public Use
  Company Number: US-GILEAD-2014-0095869

PATIENT
  Age: 73 Year
  Sex: Male

DRUGS (15)
  1. LETAIRIS [Suspect]
     Indication: PULMONARY HYPERTENSION
     Dosage: 10 MG, QD
     Route: 048
     Dates: start: 201307, end: 201401
  2. ISORDIL [Concomitant]
  3. LIPITOR [Concomitant]
  4. MIRTAZAPINE [Concomitant]
  5. VENLAFAXINE [Concomitant]
  6. METOLAZONE [Concomitant]
  7. SOTALOL [Concomitant]
  8. COZAAR [Concomitant]
  9. GLIPIZIDE [Concomitant]
  10. HYDRALAZINE [Concomitant]
  11. ZOLPIDEM [Concomitant]
  12. BACLOFEN [Concomitant]
  13. WARFARIN [Concomitant]
  14. LASIX                              /00032601/ [Concomitant]
  15. K-TAB [Concomitant]

REACTIONS (4)
  - Death [Fatal]
  - Atrial fibrillation [Unknown]
  - Heart rate increased [Unknown]
  - Dyspnoea [Unknown]
